FAERS Safety Report 18371439 (Version 4)
Quarter: 2021Q3

REPORT INFORMATION
  Report Type: Other
  Country: US (occurrence: US)
  Receive Date: 20201012
  Receipt Date: 20210719
  Transmission Date: 20211014
  Serious: Yes (Other)
  Sender: FDA-Public Use
  Company Number: US-ROCHE-2588593

PATIENT
  Age: 47 Year
  Sex: Female
  Weight: 135.29 kg

DRUGS (37)
  1. OCREVUS [Suspect]
     Active Substance: OCRELIZUMAB
     Indication: SECONDARY PROGRESSIVE MULTIPLE SCLEROSIS
     Route: 042
     Dates: start: 201812
  2. OXY IR [Concomitant]
     Active Substance: OXYCODONE HYDROCHLORIDE
     Route: 048
  3. NAPROSYN [Concomitant]
     Active Substance: NAPROXEN
     Route: 048
  4. OCREVUS [Suspect]
     Active Substance: OCRELIZUMAB
     Route: 042
     Dates: start: 20181115
  5. AMPYRA [Concomitant]
     Active Substance: DALFAMPRIDINE
     Dosage: TAKE 1 TABLET
     Route: 048
  6. NUEDEXTA [Concomitant]
     Active Substance: DEXTROMETHORPHAN HYDROBROMIDE\QUINIDINE SULFATE
     Dosage: 20?10 MG TAKE 1 CAPSULE
     Route: 048
  7. MILK OF MAGNESIA [Concomitant]
     Active Substance: MAGNESIUM HYDROXIDE
     Dosage: 400 MG/5 ML SUSPENSION, TAKE 30 ML BY MOUTH DAILY AS NEEDED FOR CONSTIPATION
     Route: 048
  8. DITROPAN [Concomitant]
     Active Substance: OXYBUTYNIN CHLORIDE
     Route: 048
  9. SENOKOT [Concomitant]
     Active Substance: SENNOSIDES
     Dosage: TAKE 2 TABLETS BY MOUTH 2 TIMES A DAY AS NEEDED FOR CONSTIPATION
     Route: 048
  10. L?TYROSINE [Concomitant]
     Active Substance: TYROSINE
     Dosage: TAKE 1 TABLET
     Route: 048
  11. MELATONIN [Concomitant]
     Active Substance: MELATONIN
     Route: 048
  12. POTASSIUM 99 [Concomitant]
     Active Substance: POTASSIUM
     Dosage: TAKE 1 TABLET DAILY AS NEEDED
     Route: 048
  13. OCREVUS [Suspect]
     Active Substance: OCRELIZUMAB
     Route: 042
     Dates: start: 201804, end: 201906
  14. COLACE [Concomitant]
     Active Substance: DOCUSATE SODIUM
     Dosage: 1 CAPSULE
     Route: 048
  15. FLONASE [Concomitant]
     Active Substance: FLUTICASONE PROPIONATE
     Dosage: 50 MCG/ACT NASAL SPRAY, 1 SPRAY EACH NOSTRIL DAILY
     Route: 045
  16. VENTOLIN HFA [Concomitant]
     Active Substance: ALBUTEROL SULFATE
     Dosage: 108 (90 BASE) MCG/ACT INHALER INHALE 2 PUFFS BY MOUTH AS DIRECTED EVERY 6 HOURS AS NEEDED WHEEZING
  17. VITAMIN C [Concomitant]
     Active Substance: ASCORBIC ACID
     Route: 048
  18. BROMELAINS [Concomitant]
     Active Substance: BROMELAINS
     Dosage: TAKE 1 TABLET
     Route: 048
  19. TURMERIC [Concomitant]
     Active Substance: HERBALS\TURMERIC
     Dosage: TAKE 1 TABLET
     Route: 048
  20. ZYLOPRIM [Concomitant]
     Active Substance: ALLOPURINOL
     Dosage: TAKE 0.5 MG TABLETS
     Route: 048
  21. OCREVUS [Suspect]
     Active Substance: OCRELIZUMAB
     Route: 042
     Dates: start: 20181101, end: 201906
  22. OMEGA 3 [Concomitant]
     Active Substance: OMEGA-3 FATTY ACIDS
     Dosage: TAKE 2 CAPSULES
     Route: 048
  23. BACTRIM DS [Concomitant]
     Active Substance: SULFAMETHOXAZOLE\TRIMETHOPRIM
     Dosage: 800?160 MG PER TABLET, TAKE 1 TABLET (160 MG OF TRIMETHOPRIM TOTAL)
     Route: 048
  24. ADVIL [Concomitant]
     Active Substance: IBUPROFEN
     Dosage: ONE TABLET
     Route: 048
  25. ZANAFLEX [Concomitant]
     Active Substance: TIZANIDINE HYDROCHLORIDE
     Dosage: 2 AT BEDTIME
     Route: 048
  26. BIOTIN [Concomitant]
     Active Substance: BIOTIN
     Route: 048
  27. CHOLECALCIFEROL [Concomitant]
     Active Substance: CHOLECALCIFEROL
     Dosage: 1000 UNITS
     Route: 048
  28. COENZYME Q10 [Concomitant]
     Active Substance: DIETARY SUPPLEMENT\UBIDECARENONE
     Route: 048
  29. RESVERATROL [Concomitant]
     Active Substance: DIETARY SUPPLEMENT\RESVERATROL
     Dosage: TAKE 1 CAPSULE
     Route: 048
  30. NUEDEXTA [Concomitant]
     Active Substance: DEXTROMETHORPHAN HYDROBROMIDE\QUINIDINE SULFATE
     Indication: AFFECT LABILITY
     Route: 048
  31. TYLENOL [Concomitant]
     Active Substance: ACETAMINOPHEN
     Dosage: AS NEEDED
     Route: 048
  32. LIORESAL [Concomitant]
     Active Substance: BACLOFEN
     Dosage: 1/2 IN AM AND ONE AT NOON AND 1 AT BEDTIME
  33. DITROPAN [Concomitant]
     Active Substance: OXYBUTYNIN CHLORIDE
     Dosage: AS NEEDED
     Route: 048
  34. MIRALAX [Concomitant]
     Active Substance: POLYETHYLENE GLYCOL 3350
     Dosage: 17 G PACKET
     Route: 048
  35. FLOMAX [Concomitant]
     Active Substance: TAMSULOSIN HYDROCHLORIDE
     Route: 048
  36. POTASSIUM CITRATE. [Concomitant]
     Active Substance: POTASSIUM CITRATE
     Dosage: TAKE 1 TABLET
     Route: 048
  37. LYRICA [Concomitant]
     Active Substance: PREGABALIN
     Route: 048

REACTIONS (6)
  - Kidney infection [Unknown]
  - Visual impairment [Not Recovered/Not Resolved]
  - Nephrolithiasis [Not Recovered/Not Resolved]
  - Off label use [Unknown]
  - Nephrolithiasis [Not Recovered/Not Resolved]
  - Affect lability [Not Recovered/Not Resolved]

NARRATIVE: CASE EVENT DATE: 201908
